FAERS Safety Report 9166653 (Version 1)
Quarter: 2013Q1

REPORT INFORMATION
  Report Type: Spontaneous
  Country: FR (occurrence: FR)
  Receive Date: 20130315
  Receipt Date: 20130315
  Transmission Date: 20140127
  Serious: Yes (Hospitalization)
  Sender: FDA-Public Use
  Company Number: FR-ROCHE-1197568

PATIENT
  Age: 83 Year
  Sex: Male

DRUGS (3)
  1. LUCENTIS [Suspect]
     Indication: PRODUCT USED FOR UNKNOWN INDICATION
     Dosage: 10 MG/ML , 3 INJECTION
     Route: 050
     Dates: start: 2009
  2. LUCENTIS [Suspect]
     Dosage: 07 INJECTION
     Route: 050
     Dates: start: 2012
  3. LUCENTIS [Suspect]
     Dosage: LAST DOSE
     Route: 050
     Dates: start: 20120927

REACTIONS (1)
  - Ischaemic stroke [Recovering/Resolving]
